FAERS Safety Report 9805917 (Version 1)
Quarter: 2014Q1

REPORT INFORMATION
  Report Type: Spontaneous
  Country: US (occurrence: None)
  Receive Date: 20140108
  Receipt Date: 20140108
  Transmission Date: 20141002
  Serious: Yes (Other)
  Sender: FDA-Public Use
  Company Number: None

PATIENT
  Age: 84 Year
  Sex: Male
  Weight: 81.9 kg

DRUGS (1)
  1. METOPROLOL [Suspect]
     Route: 048
     Dates: start: 20130708, end: 20130709

REACTIONS (1)
  - Atrioventricular block [None]
